FAERS Safety Report 17683877 (Version 2)
Quarter: 2020Q2

REPORT INFORMATION
  Report Type: Report from Study
  Country: US (occurrence: US)
  Receive Date: 20200420
  Receipt Date: 20200603
  Transmission Date: 20200714
  Serious: Yes (Other)
  Sender: FDA-Public Use
  Company Number: NVSC2020US100499

PATIENT
  Age: 1 Year
  Sex: Female
  Weight: 10.1 kg

DRUGS (33)
  1. PREDNISOLONE. [Concomitant]
     Active Substance: PREDNISOLONE
     Dosage: 7.5 MG, QD
     Route: 048
     Dates: start: 20190530, end: 20190704
  2. EMLA [Concomitant]
     Active Substance: LIDOCAINE\PRILOCAINE
     Dosage: 4 %, PRN
     Route: 061
     Dates: start: 20190530, end: 20190530
  3. IBUPROFEN. [Concomitant]
     Active Substance: IBUPROFEN
     Dosage: 75 MG, PRN
     Route: 048
     Dates: start: 20191102
  4. PALIVIZUMAB [Concomitant]
     Active Substance: PALIVIZUMAB
     Indication: RESPIRATORY SYNCYTIAL VIRUS INFECTION
     Dosage: 137 MG, XT
     Route: 030
     Dates: start: 20191122, end: 20191122
  5. CHOLECALCIFEROL [Concomitant]
     Active Substance: CHOLECALCIFEROL
     Indication: SUPPLEMENTATION THERAPY
     Dosage: 400 IU, QD
     Route: 048
     Dates: start: 20191102
  6. PREDNISOLONE. [Concomitant]
     Active Substance: PREDNISOLONE
     Dosage: 3 MG, QD
     Route: 048
     Dates: start: 20190719, end: 20190725
  7. NUSINERSEN [Concomitant]
     Active Substance: NUSINERSEN
     Dosage: 12 MG, XT
     Route: 037
     Dates: start: 20190627, end: 20190627
  8. TYLENOL [Concomitant]
     Active Substance: ACETAMINOPHEN
     Dosage: 90 MG, PRN
     Route: 048
     Dates: start: 20191102
  9. MILK OF MAGNESIA [Concomitant]
     Active Substance: MAGNESIUM HYDROXIDE
     Indication: CONSTIPATION
     Dosage: 2.5 ML
     Route: 048
     Dates: start: 20190429
  10. ONDANSETRON [Concomitant]
     Active Substance: ONDANSETRON
     Indication: NAUSEA
     Dosage: 4 MG, PRN
     Route: 048
     Dates: start: 20190529
  11. OMEPRAZOLE. [Concomitant]
     Active Substance: OMEPRAZOLE
     Indication: PRODUCT USED FOR UNKNOWN INDICATION
     Dosage: 2.5 ML, BID
     Route: 048
  12. PREDNISOLONE. [Concomitant]
     Active Substance: PREDNISOLONE
     Dosage: 7.5 MG, BID
     Route: 048
     Dates: start: 20190524, end: 20190527
  13. PREDNISOLONE. [Concomitant]
     Active Substance: PREDNISOLONE
     Dosage: 6 MG, QD
     Route: 048
     Dates: start: 20190705, end: 20190511
  14. PREDNISOLONE. [Concomitant]
     Active Substance: PREDNISOLONE
     Dosage: 4.5 MG, QD
     Route: 048
     Dates: start: 20190712, end: 20190718
  15. IBUPROFEN. [Concomitant]
     Active Substance: IBUPROFEN
     Indication: PYREXIA
     Dosage: 25 MG, XT
     Route: 048
     Dates: start: 20190527, end: 20190527
  16. CEFTRIAXONE. [Concomitant]
     Active Substance: CEFTRIAXONE
     Indication: URINARY TRACT INFECTION
     Dosage: 465 MG, XT
     Route: 042
     Dates: start: 20191102, end: 20191102
  17. ZOLGENSMA [Suspect]
     Active Substance: ONASEMNOGENE ABEPARVOVEC-XIOI
     Indication: SPINAL MUSCULAR ATROPHY
     Dosage: 6.6 OT, ONCE/SINGLE
     Route: 042
     Dates: start: 20190524
  18. PREDNISOLONE. [Concomitant]
     Active Substance: PREDNISOLONE
     Dosage: 1.5 MG, QD
     Route: 048
     Dates: start: 20190726, end: 20190731
  19. NUSINERSEN [Concomitant]
     Active Substance: NUSINERSEN
     Dosage: 12 MG, XT
     Route: 037
     Dates: start: 20190516, end: 20190516
  20. EMLA [Concomitant]
     Active Substance: LIDOCAINE\PRILOCAINE
     Dosage: 4 %, XT
     Route: 061
     Dates: start: 20190516, end: 20190516
  21. AMOXICILLIN. [Concomitant]
     Active Substance: AMOXICILLIN
     Indication: TONSILLITIS
     Dosage: 4 ML, TID
     Route: 048
     Dates: start: 20191104
  22. NUSINERSEN [Concomitant]
     Active Substance: NUSINERSEN
     Indication: SPINAL MUSCULAR ATROPHY
     Dosage: 12 MG, XT
     Route: 037
     Dates: start: 20190502, end: 20190502
  23. NUSINERSEN [Concomitant]
     Active Substance: NUSINERSEN
     Dosage: 12 MG, XT
     Route: 037
     Dates: start: 20190530, end: 20190530
  24. ONDANSETRON [Concomitant]
     Active Substance: ONDANSETRON
     Indication: VOMITING
  25. TYLENOL [Concomitant]
     Active Substance: ACETAMINOPHEN
     Indication: PYREXIA
     Dosage: 72 MG, XT
     Route: 048
     Dates: start: 20190528, end: 20190528
  26. PALIVIZUMAB [Concomitant]
     Active Substance: PALIVIZUMAB
     Indication: PROPHYLAXIS
  27. PREDNISOLONE. [Concomitant]
     Active Substance: PREDNISOLONE
     Indication: PROPHYLAXIS
     Dosage: 15 MG, BID
     Route: 048
     Dates: start: 20200522, end: 20200524
  28. LIDOCAINE. [Concomitant]
     Active Substance: LIDOCAINE
     Dosage: 4 %, PRN
     Route: 045
     Dates: start: 20190627
  29. EMLA [Concomitant]
     Active Substance: LIDOCAINE\PRILOCAINE
     Indication: MAINTENANCE OF ANAESTHESIA
     Dosage: 4 %, PRN
     Route: 061
     Dates: start: 20190502, end: 20190502
  30. EMLA [Concomitant]
     Active Substance: LIDOCAINE\PRILOCAINE
     Dosage: 4 %, XT
     Route: 061
     Dates: start: 20190627, end: 20190627
  31. MAGNESIUM HYDROXIDE. [Concomitant]
     Active Substance: MAGNESIUM HYDROXIDE
     Indication: PRODUCT USED FOR UNKNOWN INDICATION
     Dosage: 2.5 ML, BID
     Route: 048
  32. LIDOCAINE. [Concomitant]
     Active Substance: LIDOCAINE
     Indication: MAINTENANCE OF ANAESTHESIA
     Dosage: 0.25 ML, PRN
     Route: 023
     Dates: start: 20190502
  33. AMOXICILLIN. [Concomitant]
     Active Substance: AMOXICILLIN
     Indication: URINARY TRACT INFECTION

REACTIONS (2)
  - Vomiting [Unknown]
  - Respiratory alkalosis [Recovered/Resolved]

NARRATIVE: CASE EVENT DATE: 20191105
